FAERS Safety Report 6107725-0 (Version None)
Quarter: 2009Q1

REPORT INFORMATION
  Report Type: 
  Country: None (occurrence: None)
  Receive Date: 20090309
  Receipt Date: 20090226
  Transmission Date: 20090719
  Serious: Yes (Death, Hospitalization)
  Sender: FDA-Public Use
  Company Number: A0752304A

PATIENT
  Age: 41 Year
  Sex: Male
  Weight: 109.1 kg

DRUGS (8)
  1. ADVAIR HFA [Suspect]
     Indication: ASTHMA
     Route: 055
     Dates: start: 20020101
  2. XOPENEX [Concomitant]
  3. LISINOPRIL [Concomitant]
  4. PROVENTIL [Concomitant]
  5. FLONASE [Concomitant]
  6. ATROVENT [Concomitant]
  7. ALBUTEROL [Concomitant]
  8. PREDNISONE [Concomitant]

REACTIONS (3)
  - ASTHMA [None]
  - RESPIRATORY ACIDOSIS [None]
  - RESPIRATORY ARREST [None]
